FAERS Safety Report 9457700 (Version 1)
Quarter: 2013Q3

REPORT INFORMATION
  Report Type: Spontaneous
  Country: US (occurrence: US)
  Receive Date: 20130814
  Receipt Date: 20130814
  Transmission Date: 20140515
  Serious: Yes (Other)
  Sender: FDA-Public Use
  Company Number: US-COVIDIEN/TYCO HEALTHCARE/MALLINCKRODT-T201304089

PATIENT
  Age: 61 Year
  Sex: Female
  Weight: 90.7 kg

DRUGS (4)
  1. FENTANYL TRANSDERMAL SYSTEM [Suspect]
     Indication: PAIN
     Dosage: 100 UG/HR, Q 72 HRS
     Route: 062
     Dates: start: 20130724, end: 20130804
  2. FENTANYL TRANSDERMAL SYSTEM [Suspect]
     Dosage: 75 MCG/HR
     Dates: start: 201303, end: 20130724
  3. FENTANYL [Concomitant]
     Indication: PAIN
     Dosage: 75 UG/HR, UNK
     Dates: end: 201307
  4. PROTONIX [Concomitant]
     Indication: ABDOMINAL DISCOMFORT
     Dosage: UNK

REACTIONS (2)
  - Dyspnoea [Recovered/Resolved]
  - Drug effect increased [Recovered/Resolved]
